FAERS Safety Report 16808150 (Version 3)
Quarter: 2019Q4

REPORT INFORMATION
  Report Type: Spontaneous
  Country: JP (occurrence: JP)
  Receive Date: 20190916
  Receipt Date: 20191211
  Transmission Date: 20200122
  Serious: Yes (Hospitalization)
  Sender: FDA-Public Use
  Company Number: JP-BEH-2019106881

PATIENT
  Age: 40 Year
  Sex: Male

DRUGS (5)
  1. ERYTHROCIN [ERYTHROMYCIN] [Concomitant]
     Active Substance: ERYTHROMYCIN
  2. HIZENTRA [Suspect]
     Active Substance: HUMAN IMMUNOGLOBULIN G
     Dosage: 4 GRAM, 1 DAY
     Route: 058
     Dates: start: 20190820, end: 20190820
  3. BAKTAR [Concomitant]
     Active Substance: SULFAMETHOXAZOLE\TRIMETHOPRIM
  4. HIZENTRA [Suspect]
     Active Substance: HUMAN IMMUNOGLOBULIN G
     Indication: PRIMARY IMMUNODEFICIENCY SYNDROME
     Dosage: 4 GRAM, 1 WEEK
     Route: 058
     Dates: start: 20190827, end: 20190827
  5. BIOFERMIN [LACTOMIN] [Concomitant]

REACTIONS (1)
  - Dyshidrotic eczema [Recovered/Resolved]

NARRATIVE: CASE EVENT DATE: 20190828
